FAERS Safety Report 8543671-0 (Version None)
Quarter: 2012Q3

REPORT INFORMATION
  Report Type: 
  Country: None (occurrence: None)
  Receive Date: 20120727
  Receipt Date: 20120716
  Transmission Date: 20120928
  Serious: Yes (Other)
  Sender: FDA-Public Use
  Company Number: US-JNJCP-30000119832

PATIENT
  Age: 19 Year
  Sex: Female
  Weight: 98 kg

DRUGS (2)
  1. NEUTROGENAA? ULTRA SHEER SUNBLOCK SPF70 [Suspect]
     Dosage: ONCE
     Route: 061
     Dates: start: 20120714, end: 20120714
  2. UNKNOWN [Concomitant]

REACTIONS (1)
  - DYSPNOEA [None]
